FAERS Safety Report 7523192-4 (Version None)
Quarter: 2011Q2

REPORT INFORMATION
  Report Type: 
  Country: None (occurrence: None)
  Receive Date: 20110603
  Receipt Date: 20110525
  Transmission Date: 20111010
  Serious: Yes (Hospitalization)
  Sender: FDA-Public Use
  Company Number: GB-ELI_LILLY_AND_COMPANY-GB201105007886

PATIENT

DRUGS (1)
  1. BYETTA [Suspect]

REACTIONS (1)
  - CHOLELITHIASIS [None]
